FAERS Safety Report 10297116 (Version 4)
Quarter: 2015Q4

REPORT INFORMATION
  Report Type: Spontaneous
  Country: US (occurrence: US)
  Receive Date: 20140711
  Receipt Date: 20151008
  Transmission Date: 20160304
  Serious: Yes (Hospitalization, Other)
  Sender: FDA-Public Use
  Company Number: US-BIOGENIDEC-2014BI067511

PATIENT
  Age: 44 Year
  Sex: Female

DRUGS (32)
  1. BACLOFEN. [Concomitant]
     Active Substance: BACLOFEN
     Route: 048
  2. ROPINIROLE. [Concomitant]
     Active Substance: ROPINIROLE
     Route: 048
  3. ALPRAZOLAM. [Concomitant]
     Active Substance: ALPRAZOLAM
     Route: 048
  4. CARVEDILOL. [Concomitant]
     Active Substance: CARVEDILOL
     Route: 048
  5. DESIPRAMINE [Concomitant]
     Active Substance: DESIPRAMINE
  6. POTASSIUM CHLORIDE. [Concomitant]
     Active Substance: POTASSIUM CHLORIDE
     Route: 048
  7. BACLOFEN. [Concomitant]
     Active Substance: BACLOFEN
     Route: 048
  8. HYDROMORPHONE [Concomitant]
     Active Substance: HYDROMORPHONE
     Route: 048
  9. LANZOPRAZOLE [Concomitant]
     Active Substance: LANSOPRAZOLE
  10. NAPROXEN. [Concomitant]
     Active Substance: NAPROXEN
  11. TECFIDERA [Suspect]
     Active Substance: DIMETHYL FUMARATE
     Indication: MULTIPLE SCLEROSIS
     Route: 048
     Dates: start: 20140416, end: 20150610
  12. AZITHROMYCIN [Concomitant]
     Active Substance: AZITHROMYCIN ANHYDROUS
  13. FLUCONAZOLE. [Concomitant]
     Active Substance: FLUCONAZOLE
     Route: 048
  14. NYSTATIN. [Concomitant]
     Active Substance: NYSTATIN
  15. OXCARBAZEPINE. [Concomitant]
     Active Substance: OXCARBAZEPINE
     Route: 048
  16. METOLAZONE. [Concomitant]
     Active Substance: METOLAZONE
     Route: 048
  17. TECFIDERA [Suspect]
     Active Substance: DIMETHYL FUMARATE
     Indication: MULTIPLE SCLEROSIS
     Route: 048
  18. ESCITALOPRAM [Concomitant]
     Active Substance: ESCITALOPRAM OXALATE
     Route: 048
  19. PREDNISONE. [Concomitant]
     Active Substance: PREDNISONE
  20. CIPRO [Concomitant]
     Active Substance: CIPROFLOXACIN HYDROCHLORIDE
     Route: 048
  21. CLINDAMYCIN [Concomitant]
     Active Substance: CLINDAMYCIN\CLINDAMYCIN PHOSPHATE
  22. HYDROMORPHONE [Concomitant]
     Active Substance: HYDROMORPHONE
  23. GABAPENTIN. [Concomitant]
     Active Substance: GABAPENTIN
     Route: 048
  24. LEVOFLOXACIN. [Concomitant]
     Active Substance: LEVOFLOXACIN
  25. NAPROXEN. [Concomitant]
     Active Substance: NAPROXEN
  26. ESCITALOPRAM OXALATE. [Concomitant]
     Active Substance: ESCITALOPRAM OXALATE
  27. FUROSEMIDE. [Concomitant]
     Active Substance: FUROSEMIDE
  28. LIDODERM [Concomitant]
     Active Substance: LIDOCAINE
  29. METHYLPREDNISOLONE. [Concomitant]
     Active Substance: METHYLPREDNISOLONE
  30. METOLAZONE. [Concomitant]
     Active Substance: METOLAZONE
     Route: 048
  31. MORPHINE SULFATE EXTENDED-RELEASE [Concomitant]
     Active Substance: MORPHINE SULFATE
  32. PROMETHAZINE [Concomitant]
     Active Substance: PROMETHAZINE\PROMETHAZINE HYDROCHLORIDE

REACTIONS (5)
  - Chronic respiratory failure [Unknown]
  - Multiple sclerosis relapse [Not Recovered/Not Resolved]
  - Acute respiratory failure [Unknown]
  - Pneumonia [Unknown]
  - Implantable defibrillator insertion [Recovered/Resolved]

NARRATIVE: CASE EVENT DATE: 201406
